FAERS Safety Report 6968985-7 (Version None)
Quarter: 2010Q3

REPORT INFORMATION
  Report Type: 
  Country: None (occurrence: None)
  Receive Date: 20100907
  Receipt Date: 20100830
  Transmission Date: 20110219
  Serious: Yes (Hospitalization)
  Sender: FDA-Public Use
  Company Number: CHPA2010US14128

PATIENT
  Sex: Female

DRUGS (2)
  1. VOLTAREN [Suspect]
     Indication: JOINT SWELLING
     Dosage: 4 G, TID
     Route: 061
  2. VOLTAREN [Suspect]
     Dosage: 4 G, BID
     Route: 061
     Dates: start: 20100501

REACTIONS (3)
  - KNEE ARTHROPLASTY [None]
  - OFF LABEL USE [None]
  - THERAPEUTIC RESPONSE UNEXPECTED [None]
